FAERS Safety Report 17129333 (Version 1)
Quarter: 2019Q4

REPORT INFORMATION
  Report Type: Spontaneous
  Country: US (occurrence: US)
  Receive Date: 20191209
  Receipt Date: 20191209
  Transmission Date: 20200122
  Serious: Yes (Hospitalization, Other)
  Sender: FDA-Public Use
  Company Number: US-BAUSCH-BL-2019-063856

PATIENT
  Age: 66 Year
  Sex: Male

DRUGS (1)
  1. XIFAXAN [Suspect]
     Active Substance: RIFAXIMIN
     Indication: HEPATIC CIRRHOSIS
     Dosage: BEGAN ABOUT 1.5 YEARS PRIOR TO INITIAL REPORT
     Route: 048
     Dates: start: 2018, end: 201909

REACTIONS (6)
  - Liver transplant [Unknown]
  - Renal impairment [Unknown]
  - Hepatic function abnormal [Unknown]
  - Renal transplant [Unknown]
  - Intentional product use issue [Unknown]
  - Ammonia increased [Unknown]

NARRATIVE: CASE EVENT DATE: 2019
